FAERS Safety Report 6862300-5 (Version None)
Quarter: 2010Q3

REPORT INFORMATION
  Report Type: 
  Country: None (occurrence: None)
  Receive Date: 20100721
  Receipt Date: 20100713
  Transmission Date: 20110219
  Serious: Yes (Other)
  Sender: FDA-Public Use
  Company Number: CA-WYE-H16159610

PATIENT
  Age: 2 Year
  Sex: Male

DRUGS (1)
  1. ADVIL LIQUI-GELS [Suspect]
     Indication: ACCIDENTAL EXPOSURE
     Dosage: ^A PRETTY BIG QUANTITIY OF PIILS^
     Route: 048
     Dates: start: 20100701, end: 20100701

REACTIONS (4)
  - ABDOMINAL PAIN UPPER [None]
  - ACCIDENTAL DRUG INTAKE BY CHILD [None]
  - ACCIDENTAL OVERDOSE [None]
  - VOMITING [None]
